FAERS Safety Report 5406508-4 (Version None)
Quarter: 2007Q3

REPORT INFORMATION
  Report Type: 
  Country: None (occurrence: None)
  Receive Date: 20070806
  Receipt Date: 20070801
  Transmission Date: 20080115
  Serious: Yes (Death, Life-Threatening, Hospitalization)
  Sender: FDA-Public Use
  Company Number: US-PFIZER INC-2007039429

PATIENT
  Age: 56 Year
  Sex: Female

DRUGS (5)
  1. IRINOTECAN HCL [Suspect]
     Indication: COLORECTAL CANCER METASTATIC
     Dosage: DAILY DOSE:240MG-FREQ:FREQUENCY: ONCE EVERY 2 WEEKS
     Route: 042
  2. CETUXIMAB [Suspect]
     Indication: COLORECTAL CANCER METASTATIC
     Dosage: DAILY DOSE:800MG-FREQ:FREQUENCY: ONCE EVERY 2 WEEKS
     Route: 042
  3. DIPHENHYDRAMINE HYDROCHLORIDE [Concomitant]
     Dates: start: 20070430
  4. PALONOSETRON [Concomitant]
     Dates: start: 20070430
  5. DEXAMETHASONE 0.5MG TAB [Concomitant]
     Dates: start: 20070430

REACTIONS (15)
  - ABDOMINAL INFECTION [None]
  - ABDOMINAL PAIN LOWER [None]
  - ACUTE RESPIRATORY DISTRESS SYNDROME [None]
  - ASCITES [None]
  - ASTHENIA [None]
  - DECUBITUS ULCER [None]
  - FATIGUE [None]
  - FISTULA [None]
  - HYPOTENSION [None]
  - HYPOXIA [None]
  - ILEAL PERFORATION [None]
  - MYOCARDIAL INFARCTION [None]
  - PERITONITIS [None]
  - RENAL FAILURE ACUTE [None]
  - WOUND INFECTION [None]
